FAERS Safety Report 5418948-8 (Version None)
Quarter: 2007Q3

REPORT INFORMATION
  Report Type: 
  Country: None (occurrence: None)
  Receive Date: 20070817
  Receipt Date: 20070806
  Transmission Date: 20080115
  Serious: Yes (Other)
  Sender: FDA-Public Use
  Company Number: GB-PFIZER INC-2007063645

PATIENT
  Age: 74 Year
  Sex: Male
  Weight: 48 kg

DRUGS (10)
  1. LYRICA [Suspect]
     Indication: NEURALGIA
     Route: 048
  2. MORPHINE [Concomitant]
  3. ANTIPSYCHOTICS [Concomitant]
  4. DRUG, UNSPECIFIED [Concomitant]
  5. MORPHINE SULFATE [Concomitant]
     Indication: NEURALGIA
     Route: 048
  6. PARACETAMOL [Concomitant]
     Indication: NEURALGIA
     Route: 048
     Dates: start: 20070608
  7. AMISULPRIDE [Concomitant]
     Route: 048
     Dates: start: 20070620
  8. ASPIRIN [Concomitant]
     Route: 048
  9. LANSOPRAZOLE [Concomitant]
     Route: 048
  10. MIRTAZAPINE [Concomitant]
     Route: 048
     Dates: start: 20031201

REACTIONS (2)
  - SOMNOLENCE [None]
  - UNRESPONSIVE TO STIMULI [None]
